FAERS Safety Report 17554956 (Version 1)
Quarter: 2020Q1

REPORT INFORMATION
  Report Type: Spontaneous
  Country: US (occurrence: US)
  Receive Date: 20200318
  Receipt Date: 20200318
  Transmission Date: 20200409
  Serious: No
  Sender: FDA-Public Use
  Company Number: US-JNJFOC-20200321003

PATIENT
  Sex: Female
  Weight: 90.8 kg

DRUGS (1)
  1. CONCERTA [Suspect]
     Active Substance: METHYLPHENIDATE HYDROCHLORIDE
     Indication: DISTURBANCE IN ATTENTION
     Route: 048

REACTIONS (4)
  - Feeling abnormal [Unknown]
  - Abnormal behaviour [Unknown]
  - Off label use [Unknown]
  - Product use in unapproved indication [Unknown]
